FAERS Safety Report 9423294 (Version 2)
Quarter: 2014Q1

REPORT INFORMATION
  Report Type: Spontaneous
  Country: US (occurrence: US)
  Receive Date: 20130726
  Receipt Date: 20140103
  Transmission Date: 20141002
  Serious: Yes (Hospitalization, Other)
  Sender: FDA-Public Use
  Company Number: US-BAYER-2013-089678

PATIENT
  Age: 21 Year
  Sex: Female
  Weight: 70.3 kg

DRUGS (4)
  1. MIRENA [Suspect]
     Indication: CONTRACEPTION
     Dosage: 20 MCG/24HR, CONT
     Route: 015
     Dates: start: 20100907, end: 20110824
  2. PROMETHAZINE DM [Concomitant]
     Dosage: UNK
     Dates: start: 20110531
  3. METRONIDAZOLE [Concomitant]
     Dosage: 0.75%, UNK
     Route: 067
     Dates: start: 20110630
  4. WELLBUTRIN [Concomitant]
     Dosage: UNK

REACTIONS (11)
  - Uterine perforation [None]
  - Genital haemorrhage [None]
  - Injury [None]
  - Emotional distress [None]
  - Abdominal pain [None]
  - Uterine fibrosis [None]
  - Abortion spontaneous [None]
  - Infertility female [None]
  - Depression [None]
  - Device issue [None]
  - Procedural pain [None]
